FAERS Safety Report 17165584 (Version 3)
Quarter: 2020Q1

REPORT INFORMATION
  Report Type: Spontaneous
  Country: US (occurrence: US)
  Receive Date: 20191217
  Receipt Date: 20200206
  Transmission Date: 20200409
  Serious: Yes (Other)
  Sender: FDA-Public Use
  Company Number: US-ASTRAZENECA-2019SF79968

PATIENT
  Age: 23699 Day
  Sex: Female

DRUGS (2)
  1. BYDUREON [Suspect]
     Active Substance: EXENATIDE
     Indication: TYPE 2 DIABETES MELLITUS
     Route: 065
  2. HUMALOG [Concomitant]
     Active Substance: INSULIN LISPRO

REACTIONS (7)
  - Back pain [Unknown]
  - Wrist fracture [Unknown]
  - Head injury [Unknown]
  - Feeling abnormal [Not Recovered/Not Resolved]
  - Hypokinesia [Recovered/Resolved]
  - Pruritus [Unknown]
  - Device failure [Unknown]

NARRATIVE: CASE EVENT DATE: 20200116
